FAERS Safety Report 19145419 (Version 1)
Quarter: 2021Q2

REPORT INFORMATION
  Report Type: Report from Study
  Country: JP (occurrence: JP)
  Receive Date: 20210416
  Receipt Date: 20210416
  Transmission Date: 20210717
  Serious: Yes (Death)
  Sender: FDA-Public Use
  Company Number: JP-PFIZER INC-2021413347

PATIENT

DRUGS (9)
  1. HYDROCORTISONE SODIUM SUCCINATE [Suspect]
     Active Substance: HYDROCORTISONE SODIUM SUCCINATE
     Dosage: 30 MG/M2, DAY 1 AND 8
     Route: 037
  2. FOLINIC ACID [Suspect]
     Active Substance: LEUCOVORIN
     Dosage: 15 MG/M2 Q6HX7 DAY 2AND 3
  3. DEXAMETHASONE. [Suspect]
     Active Substance: DEXAMETHASONE
     Dosage: 6 MG/M2, CYCLIC (DAY 1?8)
  4. METHOTREXATE SODIUM. [Suspect]
     Active Substance: METHOTREXATE SODIUM
     Dosage: 3.0 MG/M2, CYCLIC, (6H, DAY 1)
     Route: 041
  5. METHOTREXATE SODIUM. [Suspect]
     Active Substance: METHOTREXATE SODIUM
     Dosage: 12 MG/M2, CYCLIC, DAY 1 AND 8
     Route: 037
  6. CYCLOPHOSPHAMIDE. [Suspect]
     Active Substance: CYCLOPHOSPHAMIDE
     Dosage: UNK, CYCLIC (0.25 G/M2 I.V. X6 DAY 1?6)
     Route: 042
  7. CYTARABINE. [Suspect]
     Active Substance: CYTARABINE
     Dosage: 100 MG/M2, CYCLIC (Q 12H X 2/DAY, DAY 2,3 AND 4)
     Route: 042
  8. CYTARABINE. [Suspect]
     Active Substance: CYTARABINE
     Dosage: 30 MG/M2, CYCLIC
     Route: 037
  9. VINCRISTINE [Suspect]
     Active Substance: VINCRISTINE
     Dosage: 4.0 MG/M2, CYCLIC  (DAY 1 AND 8 )
     Route: 042

REACTIONS (2)
  - Toxicity to various agents [Fatal]
  - Hepatic failure [Fatal]
